FAERS Safety Report 5718488-2 (Version None)
Quarter: 2008Q2

REPORT INFORMATION
  Report Type: 
  Country: None (occurrence: None)
  Receive Date: 20080425
  Receipt Date: 20080423
  Transmission Date: 20081010
  Serious: Yes (Hospitalization)
  Sender: FDA-Public Use
  Company Number: MX-ABBOTT-08P-107-0448905-00

PATIENT
  Sex: Female
  Weight: 54 kg

DRUGS (1)
  1. KLARICID HP [Suspect]
     Indication: INFECTION
     Route: 048
     Dates: start: 20080422, end: 20080422

REACTIONS (3)
  - GASTRITIS [None]
  - HYPERSENSITIVITY [None]
  - TACHYARRHYTHMIA [None]
